FAERS Safety Report 5990286-4 (Version None)
Quarter: 2008Q4

REPORT INFORMATION
  Report Type: 
  Country: None (occurrence: None)
  Receive Date: 20081211
  Receipt Date: 20081204
  Transmission Date: 20090506
  Serious: Yes (Other)
  Sender: FDA-Public Use
  Company Number: US-BAYER-200840048NA

PATIENT
  Sex: Female

DRUGS (1)
  1. MIRENA [Suspect]
     Indication: DRUG USE FOR UNKNOWN INDICATION
     Route: 015
     Dates: start: 20080911, end: 20081201

REACTIONS (3)
  - ABDOMINAL PAIN LOWER [None]
  - IUD MIGRATION [None]
  - VAGINAL HAEMORRHAGE [None]
